FAERS Safety Report 16290908 (Version 1)
Quarter: 2019Q2

REPORT INFORMATION
  Report Type: Spontaneous
  Country: US (occurrence: US)
  Receive Date: 20190404
  Receipt Date: 20190404
  Transmission Date: 20190711
  Serious: Yes (Hospitalization)
  Sender: FDA-Public Use
  Company Number: None

PATIENT
  Age: 53 Year
  Sex: Female

DRUGS (11)
  1. PANTOPRAZOLE [Concomitant]
     Active Substance: PANTOPRAZOLE
  2. COCHICINE [Concomitant]
  3. DICLOFENAC [Concomitant]
     Active Substance: DICLOFENAC
  4. LISINOPRIL. [Concomitant]
     Active Substance: LISINOPRIL
  5. ENBREL [Suspect]
     Active Substance: ETANERCEPT
     Indication: RHEUMATOID ARTHRITIS
     Route: 058
     Dates: start: 20180617
  6. PREDNISONE. [Concomitant]
     Active Substance: PREDNISONE
  7. ALLOPURINOL. [Concomitant]
     Active Substance: ALLOPURINOL
  8. CARVEDILOL. [Concomitant]
     Active Substance: CARVEDILOL
  9. FUROSEMIDE. [Concomitant]
     Active Substance: FUROSEMIDE
  10. POT CHLORIDE [Concomitant]
     Active Substance: POTASSIUM CHLORIDE
  11. FORTEO [Concomitant]
     Active Substance: TERIPARATIDE

REACTIONS (2)
  - Product dose omission [None]
  - Lower limb fracture [None]

NARRATIVE: CASE EVENT DATE: 20190309
